FAERS Safety Report 17701477 (Version 1)
Quarter: 2020Q2

REPORT INFORMATION
  Report Type: Report from Study
  Country: None (occurrence: US)
  Receive Date: 20200424
  Receipt Date: 20200424
  Transmission Date: 20200714
  Serious: Yes (Other)
  Sender: FDA-Public Use
  Company Number: US-ABBVIE-20K-163-3373308-00

PATIENT
  Sex: Female

DRUGS (1)
  1. HUMIRA [Suspect]
     Active Substance: ADALIMUMAB
     Indication: RHEUMATOID ARTHRITIS
     Route: 058
     Dates: end: 20200328

REACTIONS (7)
  - Thyroid disorder [Unknown]
  - Weight decreased [Unknown]
  - Pulmonary fibrosis [Unknown]
  - Cyst [Unknown]
  - Kidney fibrosis [Unknown]
  - Hand deformity [Unknown]
  - Peripheral swelling [Unknown]
